FAERS Safety Report 10170648 (Version 2)
Quarter: 2014Q2

REPORT INFORMATION
  Report Type: Spontaneous
  Country: JP (occurrence: JP)
  Receive Date: 20140514
  Receipt Date: 20140625
  Transmission Date: 20141212
  Serious: Yes (Other)
  Sender: FDA-Public Use
  Company Number: JP-009507513-1405JPN006001

PATIENT
  Age: 41 Year
  Sex: Female

DRUGS (2)
  1. CLARITIN [Suspect]
     Indication: RHINITIS ALLERGIC
     Dosage: 10 MG, 1 X 1 DAY, QD
     Route: 048
     Dates: start: 20140425, end: 20140501
  2. CLARITIN [Suspect]
     Indication: DERMATITIS ALLERGIC

REACTIONS (1)
  - Convulsion [Unknown]
